FAERS Safety Report 14093038 (Version 1)
Quarter: 2017Q4

REPORT INFORMATION
  Report Type: Spontaneous
  Country: DE (occurrence: DE)
  Receive Date: 20171016
  Receipt Date: 20171016
  Transmission Date: 20180321
  Serious: Yes (Other)
  Sender: FDA-Public Use
  Company Number: DE-MYLANLABS-2017M1063240

PATIENT
  Sex: Female

DRUGS (1)
  1. LAMOTRIGIN DURA 25 MG, TABLETTEN [Suspect]
     Active Substance: LAMOTRIGINE
     Indication: PRODUCT USED FOR UNKNOWN INDICATION
     Dosage: 75 MG, BID
     Dates: start: 2008

REACTIONS (2)
  - Alopecia [Not Recovered/Not Resolved]
  - Angina pectoris [Unknown]
